FAERS Safety Report 9664631 (Version 4)
Quarter: 2014Q1

REPORT INFORMATION
  Report Type: Spontaneous
  Country: JP (occurrence: JP)
  Receive Date: 20131101
  Receipt Date: 20140224
  Transmission Date: 20141002
  Serious: Yes (Death)
  Sender: FDA-Public Use
  Company Number: JP-ROCHE-1297658

PATIENT
  Age: 66 Year
  Sex: Female

DRUGS (6)
  1. LUCENTIS [Suspect]
     Indication: RETINAL VEIN OCCLUSION
     Route: 050
     Dates: start: 20131027
  2. AZELNIDIPINE [Concomitant]
     Indication: HYPERTENSION
     Route: 048
  3. PROPRANOLOL HYDROCHLORIDE [Concomitant]
     Indication: HYPERTHYROIDISM
  4. MAGLAX [Concomitant]
     Indication: HYPERTHYROIDISM
     Route: 048
  5. AMLODIPINE BESILATE [Concomitant]
     Indication: HYPERTENSION
     Route: 048
  6. MERCAZOLE [Concomitant]
     Indication: HYPERTHYROIDISM

REACTIONS (2)
  - Drowning [Fatal]
  - Completed suicide [Fatal]
